FAERS Safety Report 15113964 (Version 1)
Quarter: 2018Q3

REPORT INFORMATION
  Report Type: Spontaneous
  Country: US (occurrence: US)
  Receive Date: 20180706
  Receipt Date: 20180706
  Transmission Date: 20181010
  Serious: No
  Sender: FDA-Public Use
  Company Number: US-GLENMARK PHARMACEUTICALS-2018GMK035466

PATIENT

DRUGS (2)
  1. MUPIROCIN. [Suspect]
     Active Substance: MUPIROCIN
     Indication: WOUND INFECTION
     Dosage: UNK
     Route: 061
     Dates: start: 20180414
  2. MUPIROCIN. [Suspect]
     Active Substance: MUPIROCIN
     Indication: LOCALISED INFECTION

REACTIONS (3)
  - Rash erythematous [Unknown]
  - Dizziness [Unknown]
  - Product use in unapproved indication [Unknown]
